FAERS Safety Report 20956457 (Version 2)
Quarter: 2022Q3

REPORT INFORMATION
  Report Type: Report from Study
  Country: DE (occurrence: DE)
  Receive Date: 20220614
  Receipt Date: 20220706
  Transmission Date: 20221027
  Serious: Yes (Other)
  Sender: FDA-Public Use
  Company Number: DE-JNJFOC-20211253748

PATIENT
  Sex: Male
  Weight: 93 kg

DRUGS (5)
  1. TRABECTEDIN [Suspect]
     Active Substance: TRABECTEDIN
     Indication: Myxofibrosarcoma
     Dosage: C1D1?TOTAL DOSE GIVEN 3.1 MG
     Route: 042
     Dates: start: 20190823, end: 20190823
  2. TRABECTEDIN [Suspect]
     Active Substance: TRABECTEDIN
     Dosage: C2D1?TOTAL DOSE GIVEN 2.4 MG
     Dates: start: 20190914
  3. TRABECTEDIN [Suspect]
     Active Substance: TRABECTEDIN
     Dosage: C3D1?TOTAL DOSE GIVEN 2 MG
     Dates: start: 20191015
  4. TRABECTEDIN [Suspect]
     Active Substance: TRABECTEDIN
     Dosage: CYCLE 4 TO CYCLE 16
     Route: 042
     Dates: start: 20191106, end: 20200724
  5. NIVOLUMAB [Suspect]
     Active Substance: NIVOLUMAB
     Indication: Myxofibrosarcoma
     Route: 065

REACTIONS (1)
  - Alanine aminotransferase increased [Recovered/Resolved]

NARRATIVE: CASE EVENT DATE: 20190825
